FAERS Safety Report 26198903 (Version 1)
Quarter: 2025Q4

REPORT INFORMATION
  Report Type: Spontaneous
  Country: US (occurrence: US)
  Receive Date: 20251225
  Receipt Date: 20251225
  Transmission Date: 20260117
  Serious: Yes (Hospitalization, Other)
  Sender: SOMERSET THERAPEUTICS, LLC
  Company Number: US-MIT-25-75-US-2025-SOM-LIT-00501

PATIENT
  Age: 71 Year
  Sex: Female

DRUGS (1)
  1. SODIUM NITROPRUSSIDE [Suspect]
     Active Substance: SODIUM NITROPRUSSIDE
     Indication: Cardiac failure chronic
     Dosage: (RANGE 0.25-3MCG/KG/MIN)
     Route: 065

REACTIONS (8)
  - Renal failure [Recovering/Resolving]
  - Cerebrovascular accident [Recovering/Resolving]
  - Mental status changes [Recovering/Resolving]
  - Blood creatinine increased [Recovering/Resolving]
  - Lethargy [Recovering/Resolving]
  - Confusional state [Recovering/Resolving]
  - Toxicity to various agents [Recovering/Resolving]
  - Product use in unapproved indication [Unknown]
